FAERS Safety Report 25915353 (Version 1)
Quarter: 2025Q4

REPORT INFORMATION
  Report Type: Spontaneous
  Country: US (occurrence: US)
  Receive Date: 20251013
  Receipt Date: 20251013
  Transmission Date: 20260118
  Serious: No
  Sender: ANI
  Company Number: US-ANIPHARMA-2025-US-033708

PATIENT
  Age: 73 Year
  Sex: Female
  Weight: 65.77 kg

DRUGS (1)
  1. CORTICOTROPIN [Suspect]
     Active Substance: CORTICOTROPIN
     Indication: Illness
     Dosage: INJECT THE CONTENTS OF 1 SYRINGE (0.5 ML OR 40 UNITS) UNDER THE SKIN EVERY DAY / DIRECTIONS PER NURS
     Route: 058
     Dates: start: 20250715

REACTIONS (3)
  - Dizziness [Recovered/Resolved]
  - Product dispensing error [Not Recovered/Not Resolved]
  - Contraindicated product administered [Not Recovered/Not Resolved]

NARRATIVE: CASE EVENT DATE: 20250715
